FAERS Safety Report 7318537-4 (Version None)
Quarter: 2011Q1

REPORT INFORMATION
  Report Type: 
  Country: None (occurrence: None)
  Receive Date: 20110228
  Receipt Date: 20110215
  Transmission Date: 20110831
  Serious: Yes (Other)
  Sender: FDA-Public Use
  Company Number: US-PFIZER INC-2011009797

PATIENT
  Age: 78 Year
  Sex: Male

DRUGS (8)
  1. ENALAPRIL [Concomitant]
     Indication: HYPERTENSION
     Dosage: 10 MG, UNK
     Route: 048
     Dates: start: 20050110
  2. ALLOPURINOL [Concomitant]
     Indication: GOUT
     Dosage: 100 MG, UNK
     Route: 048
     Dates: start: 20051011
  3. MOBIC [Concomitant]
     Indication: OSTEOARTHRITIS
  4. PLAVIX [Concomitant]
     Indication: PERIPHERAL ARTERIAL OCCLUSIVE DISEASE
     Dosage: 75 MG, UNK
     Route: 048
     Dates: start: 20050713
  5. EVOXAC [Concomitant]
     Indication: SICCA SYNDROME
     Dosage: 30 MG, UNK
     Route: 048
     Dates: start: 20051123
  6. MOBIC [Concomitant]
     Indication: GOUT
     Dosage: 7.5 MG, UNK
     Route: 048
     Dates: start: 20050713
  7. LYRICA [Suspect]
     Dosage: 25 MG, 1X/DAY
     Route: 048
     Dates: start: 20080501
  8. LANOXIN [Concomitant]
     Indication: CARDIAC FAILURE CONGESTIVE
     Dosage: 0.125
     Route: 048
     Dates: start: 20050314

REACTIONS (1)
  - OEDEMA PERIPHERAL [None]
